FAERS Safety Report 7541067-1 (Version None)
Quarter: 2011Q2

REPORT INFORMATION
  Report Type: 
  Country: None (occurrence: None)
  Receive Date: 20110610
  Receipt Date: 20110603
  Transmission Date: 20111010
  Serious: Yes (Other)
  Sender: FDA-Public Use
  Company Number: US-ROCHE-686342

PATIENT
  Sex: Male
  Weight: 93 kg

DRUGS (4)
  1. ACCUTANE [Suspect]
     Route: 065
     Dates: start: 19990101
  2. VALTREX [Concomitant]
  3. ACCUTANE [Suspect]
     Route: 065
     Dates: start: 20050506, end: 20050618
  4. AMNESTEEM [Suspect]
     Indication: ACNE
     Route: 065
     Dates: start: 20050618, end: 20051118

REACTIONS (7)
  - GASTRITIS [None]
  - OESOPHAGITIS [None]
  - CROHN'S DISEASE [None]
  - INFLAMMATORY BOWEL DISEASE [None]
  - ULCER [None]
  - ORAL HERPES [None]
  - INTESTINAL OBSTRUCTION [None]
